FAERS Safety Report 7132275-2 (Version None)
Quarter: 2010Q4

REPORT INFORMATION
  Report Type: 
  Country: None (occurrence: None)
  Receive Date: 20101202
  Receipt Date: 20101119
  Transmission Date: 20110411
  Serious: Yes (Hospitalization)
  Sender: FDA-Public Use
  Company Number: PHHY2010CH78548

PATIENT
  Sex: Male

DRUGS (3)
  1. ZOMETA [Suspect]
     Dosage: 4 MG
     Route: 042
     Dates: start: 20101007
  2. TAXOTERE [Suspect]
     Dosage: 80 MG, UNK
     Route: 042
     Dates: start: 20101007
  3. CARBOPLATIN [Suspect]
     Dosage: 150 MG, UNK
     Route: 042
     Dates: start: 20101007

REACTIONS (3)
  - HYPOCALCAEMIA [None]
  - RENAL FAILURE ACUTE [None]
  - VITAMIN D DEFICIENCY [None]
